FAERS Safety Report 7110748-6 (Version None)
Quarter: 2010Q4

REPORT INFORMATION
  Report Type: 
  Country: None (occurrence: None)
  Receive Date: 20101118
  Receipt Date: 20101109
  Transmission Date: 20110411
  Serious: Yes (Other)
  Sender: FDA-Public Use
  Company Number: B0678711A

PATIENT
  Age: 55 Year
  Sex: Female

DRUGS (1)
  1. TYVERB [Suspect]
     Indication: BREAST CANCER
     Route: 065
     Dates: start: 20100901, end: 20100901

REACTIONS (3)
  - DIARRHOEA [None]
  - HAEMODIALYSIS [None]
  - RENAL FAILURE ACUTE [None]
